FAERS Safety Report 24270527 (Version 1)
Quarter: 2024Q3

REPORT INFORMATION
  Report Type: Spontaneous
  Country: US (occurrence: US)
  Receive Date: 20240831
  Receipt Date: 20240831
  Transmission Date: 20241016
  Serious: No
  Sender: AMGEN
  Company Number: US-AMGEN-USASP2024171973

PATIENT
  Sex: Male

DRUGS (3)
  1. REPATHA [Suspect]
     Active Substance: EVOLOCUMAB
     Indication: Product used for unknown indication
     Dosage: UNK
     Route: 065
  2. REPATHA [Suspect]
     Active Substance: EVOLOCUMAB
     Dosage: 140 MILLIGRAM, Q3MO (12 WEEKS OR SO, NOT CONSISTANT )
     Route: 065
     Dates: end: 20240606
  3. PROPECIA [Concomitant]
     Active Substance: FINASTERIDE

REACTIONS (3)
  - Arthralgia [Recovering/Resolving]
  - Nerve compression [Unknown]
  - Off label use [Unknown]
